FAERS Safety Report 10404493 (Version 2)
Quarter: 2014Q3

REPORT INFORMATION
  Report Type: Spontaneous
  Country: US (occurrence: US)
  Receive Date: 20140823
  Receipt Date: 20140929
  Transmission Date: 20150326
  Serious: No
  Sender: FDA-Public Use
  Company Number: US-009507513-1408USA013264

PATIENT
  Age: 78 Year
  Sex: Female
  Weight: 54.42 kg

DRUGS (2)
  1. OXYTROL FOR WOMEN [Suspect]
     Active Substance: OXYBUTYNIN
     Indication: URINARY INCONTINENCE
     Dosage: UNK, UNKNOWN
     Route: 062
     Dates: start: 20140812, end: 20140815
  2. DIGESTIVE ADVANTAGE LACTOSE INTOLERANCE THERAPY [Concomitant]
     Indication: LACTOSE INTOLERANCE
     Dosage: UNK, UNKNOWN

REACTIONS (3)
  - Application site scar [Not Recovered/Not Resolved]
  - Application site erythema [Not Recovered/Not Resolved]
  - Application site rash [Not Recovered/Not Resolved]

NARRATIVE: CASE EVENT DATE: 201408
